FAERS Safety Report 15408757 (Version 1)
Quarter: 2018Q4

REPORT INFORMATION
  Report Type: Spontaneous
  Country: US (occurrence: US)
  Receive Date: 20180920
  Receipt Date: 20180920
  Transmission Date: 20190204
  Serious: Yes (Other)
  Sender: FDA-Public Use
  Company Number: US-TEVA-2018-US-954751

PATIENT
  Sex: Female
  Weight: 59 kg

DRUGS (2)
  1. HYDROXYCTAB-A (HYDROXYCHLOROQUINE) [Suspect]
     Active Substance: HYDROXYCHLOROQUINE
     Indication: PRODUCT USED FOR UNKNOWN INDICATION
     Route: 065
     Dates: start: 201709
  2. HYDROXYCTAB-A (HYDROXYCHLOROQUINE) [Suspect]
     Active Substance: HYDROXYCHLOROQUINE
     Dosage: 300 MG, DAILY, 1.5 TABLETS
     Route: 065

REACTIONS (10)
  - Corneal deposits [Unknown]
  - Eye pain [Unknown]
  - Weight increased [Unknown]
  - Sjogren^s syndrome [Unknown]
  - Vision blurred [Unknown]
  - Visual impairment [Unknown]
  - Wrong technique in product usage process [Unknown]
  - Dry mouth [Unknown]
  - Dry eye [Unknown]
  - Cataract [Unknown]

NARRATIVE: CASE EVENT DATE: 201709
